FAERS Safety Report 7393225-7 (Version None)
Quarter: 2011Q2

REPORT INFORMATION
  Report Type: 
  Country: None (occurrence: None)
  Receive Date: 20110405
  Receipt Date: 20110324
  Transmission Date: 20111010
  Serious: Yes (Hospitalization)
  Sender: FDA-Public Use
  Company Number: US-BIOGENIDEC-2010BI033241

PATIENT
  Age: 42 Year
  Sex: Female

DRUGS (1)
  1. TYSABRI [Suspect]
     Indication: MULTIPLE SCLEROSIS
     Route: 042
     Dates: start: 20080414

REACTIONS (7)
  - CENTRAL NERVOUS SYSTEM LESION [None]
  - FATIGUE [None]
  - DEPRESSION [None]
  - SLEEP APNOEA SYNDROME [None]
  - BLADDER DISORDER [None]
  - MULTIPLE SCLEROSIS RELAPSE [None]
  - MEMORY IMPAIRMENT [None]
